FAERS Safety Report 5322705-0 (Version None)
Quarter: 2007Q2

REPORT INFORMATION
  Report Type: 
  Country: None (occurrence: None)
  Receive Date: 20070507
  Receipt Date: 20070424
  Transmission Date: 20071010
  Serious: Yes (Hospitalization)
  Sender: FDA-Public Use
  Company Number: 2007RL000180

PATIENT
  Age: 65 Year
  Sex: Male
  Weight: 92.9874 kg

DRUGS (18)
  1. OMACOR [Suspect]
     Indication: BLOOD TRIGLYCERIDES INCREASED
     Dosage: 4 GM; 2 GM : QD;PO
     Route: 048
     Dates: start: 20070220, end: 20070317
  2. OMACOR [Suspect]
     Indication: BLOOD TRIGLYCERIDES INCREASED
     Dosage: 4 GM; 2 GM : QD;PO
     Route: 048
     Dates: start: 20070327, end: 20070424
  3. LIPITOR [Concomitant]
  4. COREG [Concomitant]
  5. ASACOL [Concomitant]
  6. NEXIUM [Concomitant]
  7. ISOSORBIDE [Concomitant]
  8. AVANDIA [Concomitant]
  9. CLINORIL [Concomitant]
  10. VITAMIN B-12 [Concomitant]
  11. IRON [Concomitant]
  12. GLIPIZIDE [Concomitant]
  13. ULTRAM [Concomitant]
  14. MULTI-VITAMIN [Concomitant]
  15. FOLIC ACID [Concomitant]
  16. SODIUM CHLORIDE 0.9% [Concomitant]
  17. ALBUTEROL [Concomitant]
  18. .. [Concomitant]

REACTIONS (8)
  - ABDOMINAL HERNIA [None]
  - CHEST PAIN [None]
  - CONSTIPATION [None]
  - DYSPNOEA [None]
  - HEPATIC CIRRHOSIS [None]
  - OEDEMA PERIPHERAL [None]
  - PRURITUS [None]
  - TREATMENT NONCOMPLIANCE [None]
